FAERS Safety Report 22685750 (Version 11)
Quarter: 2024Q3

REPORT INFORMATION
  Report Type: Report from Study
  Country: US (occurrence: US)
  Receive Date: 20230710
  Receipt Date: 20240708
  Transmission Date: 20241017
  Serious: Yes (Hospitalization, Other)
  Sender: ACADIA PHARMACEUTICALS
  Company Number: US-ACADIA PHARMACEUTICALS INC.-ACA-2023-TRF-002420

PATIENT
  Age: 13 Year
  Sex: Female

DRUGS (11)
  1. DAYBUE [Suspect]
     Active Substance: TROFINETIDE
     Indication: Rett syndrome
     Dosage: 40 MILLILITER, BID VIA G TUBE
     Dates: start: 20230505, end: 20231016
  2. DAYBUE [Suspect]
     Active Substance: TROFINETIDE
     Dosage: 40 MILLILITER, BID VIA G TUBE
  3. DAYBUE [Suspect]
     Active Substance: TROFINETIDE
     Dosage: 40 MILLILITER, BID VIA G TUBE
  4. UNSPECIFIED INGREDIENT [Suspect]
     Active Substance: UNSPECIFIED INGREDIENT
  5. GAS RELIEF [Concomitant]
     Active Substance: DIMETHICONE
     Route: 048
  6. MELATONIN [Concomitant]
     Active Substance: MELATONIN
  7. MULTIVITAMIN GUMMY BEARS [Concomitant]
  8. ZINC GLUCONATE [Concomitant]
     Active Substance: ZINC GLUCONATE
  9. XYZAL [Concomitant]
     Active Substance: LEVOCETIRIZINE DIHYDROCHLORIDE
  10. PRAMIPEXOLE DIHYDROCHLORIDE [Concomitant]
     Active Substance: PRAMIPEXOLE DIHYDROCHLORIDE
  11. METAMUCIL [Concomitant]
     Active Substance: PLANTAGO SEED

REACTIONS (11)
  - Tracheostomy infection [Not Recovered/Not Resolved]
  - Tracheostomy closure [Not Recovered/Not Resolved]
  - Seizure [Not Recovered/Not Resolved]
  - Tracheostomy malfunction [Unknown]
  - Viral infection [Recovering/Resolving]
  - Product dose omission issue [Not Recovered/Not Resolved]
  - Diarrhoea [Unknown]
  - Diarrhoea [Not Recovered/Not Resolved]
  - Diarrhoea [Not Recovered/Not Resolved]
  - Diarrhoea [Not Recovered/Not Resolved]
  - Diarrhoea [Not Recovered/Not Resolved]

NARRATIVE: CASE EVENT DATE: 20231016
